FAERS Safety Report 5959807-1 (Version None)
Quarter: 2008Q4

REPORT INFORMATION
  Report Type: 
  Country: None (occurrence: None)
  Receive Date: 20081120
  Receipt Date: 20081114
  Transmission Date: 20090506
  Serious: Yes (Death, Hospitalization)
  Sender: FDA-Public Use
  Company Number: A0756827A

PATIENT
  Age: 81 Year
  Sex: Female

DRUGS (7)
  1. SERETIDE [Suspect]
     Indication: PULMONARY FIBROSIS
     Route: 055
     Dates: start: 20071001, end: 20081008
  2. ALDOMET [Concomitant]
     Dates: start: 19770101, end: 20081008
  3. HYGROTON [Concomitant]
     Dates: start: 19770101, end: 20081008
  4. DIAMICRON [Concomitant]
     Dates: start: 20040101, end: 20081008
  5. PREDNISONE TAB [Concomitant]
  6. VISKEN [Concomitant]
  7. SYNTHROID [Concomitant]
     Dates: start: 20040101, end: 20081007

REACTIONS (4)
  - DIABETES MELLITUS [None]
  - HYPERTENSION [None]
  - PULMONARY FIBROSIS [None]
  - WEIGHT INCREASED [None]
